FAERS Safety Report 22274495 (Version 2)
Quarter: 2023Q2

REPORT INFORMATION
  Report Type: Report from Study
  Country: US (occurrence: US)
  Receive Date: 20230502
  Receipt Date: 20230510
  Transmission Date: 20230722
  Serious: No
  Sender: FDA-Public Use
  Company Number: US-ABBVIE-4732960

PATIENT
  Sex: Female

DRUGS (3)
  1. RINVOQ [Suspect]
     Active Substance: UPADACITINIB
     Indication: Rheumatoid arthritis
     Dosage: FORM STRENGTH: 15MG?LAST ADMIN DATE^ 2023
     Route: 048
     Dates: start: 20230314
  2. RINVOQ [Suspect]
     Active Substance: UPADACITINIB
     Indication: Rheumatoid arthritis
     Dosage: FORM STRENGTH: 15MG?FIRST ADMIN DATE : 2023
     Route: 048
  3. RINVOQ [Suspect]
     Active Substance: UPADACITINIB
     Indication: Rheumatoid arthritis
     Dosage: FORM STRENGTH: 15 MILLIGRAM?FIRST ADMIN DATE: 17 MAR 2023
     Route: 048
     Dates: start: 20230317

REACTIONS (10)
  - Dyspnoea [Unknown]
  - Pustular psoriasis [Unknown]
  - Fatigue [Unknown]
  - Blister [Unknown]
  - Skin ulcer [Not Recovered/Not Resolved]
  - Arthritis [Not Recovered/Not Resolved]
  - Pain in extremity [Unknown]
  - Unevaluable event [Unknown]
  - Rash [Unknown]
  - Oral herpes [Unknown]
